FAERS Safety Report 26088112 (Version 1)
Quarter: 2025Q4

REPORT INFORMATION
  Report Type: Spontaneous
  Country: US (occurrence: None)
  Receive Date: 20251125
  Receipt Date: 20251125
  Transmission Date: 20260118
  Serious: Yes (Hospitalization)
  Sender: FDA-CTU
  Company Number: None

PATIENT
  Sex: Male

DRUGS (11)
  1. REVLIMID [Suspect]
     Active Substance: LENALIDOMIDE
     Indication: Plasma cell myeloma
     Dosage: TAKE 1 CAPSULE (10 MG) BY MOUTH IN THE MORNING FOR 21 DAYS, FOLLOWED BY 7 DAYS OFF. EACH  CYCLE IS 28 DAYS. TAKE WHOLE WITH WATER. DO NOT BREAK, CHEW QR OPEN.?
     Route: 048
     Dates: start: 20250826
  2. B-12  SUB [Concomitant]
  3. DEXAMETHASONE [Concomitant]
     Active Substance: DEXAMETHASONE
  4. ELIQUIS [Concomitant]
     Active Substance: APIXABAN
  5. JOINT HEALTH [Concomitant]
     Active Substance: AMINO ACIDS\BARLEY MALT
  6. METOPROL SUC [Concomitant]
  7. VITAMINS [Concomitant]
     Active Substance: VITAMINS
  8. OMEPRAZOLE [Concomitant]
     Active Substance: OMEPRAZOLE
  9. ONDANSETRON [Concomitant]
     Active Substance: ONDANSETRON
  10. VALACYCLOVIR [Concomitant]
     Active Substance: VALACYCLOVIR HYDROCHLORIDE
  11. VALSARTAN [Concomitant]
     Active Substance: VALSARTAN

REACTIONS (2)
  - Cardiac failure [None]
  - Therapy interrupted [None]
